FAERS Safety Report 8482969-1 (Version None)
Quarter: 2012Q3

REPORT INFORMATION
  Report Type: 
  Country: None (occurrence: None)
  Receive Date: 20120702
  Receipt Date: 20120618
  Transmission Date: 20120928
  Serious: No
  Sender: FDA-Public Use
  Company Number: US-ASTRAZENECA-2012SE40730

PATIENT
  Sex: Male

DRUGS (3)
  1. SYMBICORT [Suspect]
     Indication: WHEEZING
     Dosage: 80/4.5 MCG ONE PUFF TWO TIMES A DAY
     Route: 055
  2. ATENOLOL [Suspect]
     Indication: WHEEZING
     Route: 048
  3. ATENOLOL [Suspect]
     Route: 048

REACTIONS (3)
  - BLOOD PRESSURE DECREASED [None]
  - OFF LABEL USE [None]
  - MULTIPLE ALLERGIES [None]
